FAERS Safety Report 6228246-0 (Version None)
Quarter: 2009Q2

REPORT INFORMATION
  Report Type: 
  Country: None (occurrence: None)
  Receive Date: 20090610
  Receipt Date: 20090610
  Transmission Date: 20091009
  Serious: Yes (Other)
  Sender: FDA-Public Use
  Company Number: None

PATIENT
  Sex: Male
  Weight: 58.9676 kg

DRUGS (2)
  1. RISPERDAL [Suspect]
     Indication: ABNORMAL BEHAVIOUR
     Dosage: .5MG BID PO
     Route: 048
     Dates: start: 20080128
  2. RISPERDAL [Suspect]
     Indication: ABNORMAL BEHAVIOUR
     Dosage: .25MG QD PO
     Route: 048
     Dates: start: 20070316, end: 20080127

REACTIONS (21)
  - ABDOMINAL PAIN UPPER [None]
  - BREAST ENLARGEMENT [None]
  - CONSTIPATION [None]
  - DISTURBANCE IN ATTENTION [None]
  - DIZZINESS [None]
  - DRY MOUTH [None]
  - DYSURIA [None]
  - FATIGUE [None]
  - GAIT DISTURBANCE [None]
  - HEADACHE [None]
  - INCREASED APPETITE [None]
  - MOOD ALTERED [None]
  - MUSCLE SPASMS [None]
  - RASH [None]
  - SLEEP DISORDER [None]
  - SUICIDE ATTEMPT [None]
  - THIRST [None]
  - ULCER [None]
  - VERBAL ABUSE [None]
  - VISUAL IMPAIRMENT [None]
  - WEIGHT INCREASED [None]
